FAERS Safety Report 8905235 (Version 1)
Quarter: 2012Q4

REPORT INFORMATION
  Report Type: 
  Country: CA (occurrence: CA)
  Receive Date: 20121111
  Receipt Date: 20121111
  Transmission Date: 20130627
  Serious: Yes (Other)
  Sender: FDA-Public Use
  Company Number: PHHO2005CA15786

PATIENT
  Sex: Male

DRUGS (11)
  1. SANDOSTATIN LAR (PATIENT BASIS) [Suspect]
     Indication: CARCINOID TUMOUR
     Dosage: 60 mg, every 2 weeks
     Dates: start: 20040411
  2. ACETAMINOPHEN W/CODEINE [Concomitant]
     Dosage: 8 mg, UNK
  3. ATACAND [Concomitant]
  4. CORTISONE [Concomitant]
  5. COUMADIN [Concomitant]
  6. GLUCOSAMINE SULFATE [Concomitant]
  7. IMODIUM [Concomitant]
  8. LOSEC [Concomitant]
  9. TYLENOL W/CODEINE NO. 3 [Concomitant]
  10. VITAMINS [Concomitant]
  11. ELOCOM [Concomitant]
     Dosage: 1 %, PRN
     Route: 061

REACTIONS (9)
  - Hypotension [Not Recovered/Not Resolved]
  - Cardiac murmur [Unknown]
  - Heart rate increased [Not Recovered/Not Resolved]
  - Diarrhoea [Not Recovered/Not Resolved]
  - Cough [Unknown]
  - Decreased appetite [Unknown]
  - Dyspnoea [Not Recovered/Not Resolved]
  - Asthenia [Not Recovered/Not Resolved]
  - Fatigue [Unknown]
